FAERS Safety Report 10085388 (Version 1)
Quarter: 2014Q2

REPORT INFORMATION
  Report Type: Report from Study
  Country: US (occurrence: US)
  Receive Date: 20140418
  Receipt Date: 20140418
  Transmission Date: 20141212
  Serious: Yes (Other)
  Sender: FDA-Public Use
  Company Number: US-ROCHE-1379029

PATIENT
  Sex: Female

DRUGS (1)
  1. RITUXIMAB [Suspect]
     Indication: SJOGREN^S SYNDROME
     Dosage: TOTAL 2 INFUSIONS
     Route: 042

REACTIONS (1)
  - Vaccination complication [Recovered/Resolved]
